FAERS Safety Report 9367132 (Version 2)
Quarter: 2013Q3

REPORT INFORMATION
  Report Type: Spontaneous
  Country: US (occurrence: US)
  Receive Date: 20130625
  Receipt Date: 20130827
  Transmission Date: 20140515
  Serious: Yes (Hospitalization)
  Sender: FDA-Public Use
  Company Number: US-GILEAD-2013-0077660

PATIENT
  Age: 65 Year
  Sex: Female

DRUGS (20)
  1. LETAIRIS [Suspect]
     Indication: PULMONARY HYPERTENSION
     Dosage: 10 MG, UNK
     Route: 048
     Dates: start: 20121129
  2. PREDNISONE [Concomitant]
  3. FOLIC ACID [Concomitant]
  4. HYDROCHLOROTHIAZIDE [Concomitant]
  5. METHOTREXATE [Concomitant]
  6. ALLOPURINOL [Concomitant]
  7. FORADIL HFA [Concomitant]
  8. XALATAN [Concomitant]
  9. REVATIO [Concomitant]
  10. SIMVASTATIN [Concomitant]
  11. POTASSIUM CHLORIDE [Concomitant]
  12. FUROSEMIDE [Concomitant]
  13. TYVASO [Concomitant]
  14. OMEPRAZOLE [Concomitant]
  15. SENOKOT                            /00142201/ [Concomitant]
  16. SPIRIVA [Concomitant]
  17. HIDROCODONA/ACETAMINOFEN MALLINCKRODT [Concomitant]
  18. LASIX                              /00032601/ [Concomitant]
  19. CALCIUM [Concomitant]
  20. VITAMIN D NOS [Concomitant]

REACTIONS (1)
  - Arthropathy [Unknown]
